FAERS Safety Report 10587031 (Version 2)
Quarter: 2014Q4

REPORT INFORMATION
  Report Type: Spontaneous
  Country: JP (occurrence: JP)
  Receive Date: 20141117
  Receipt Date: 20141120
  Transmission Date: 20150529
  Serious: Yes (Death)
  Sender: FDA-Public Use
  Company Number: JP-TEVA-522406ISR

PATIENT
  Age: 8 Decade
  Sex: Female

DRUGS (4)
  1. PACLITAXEL. [Suspect]
     Active Substance: PACLITAXEL
     Indication: CERVIX CARCINOMA STAGE IV
     Dosage: CUMULATIVE DOSE DURING TREATMENT: 2400 MG/BODY
     Route: 065
  2. CISPLATIN. [Suspect]
     Active Substance: CISPLATIN
     Indication: CERVIX CARCINOMA STAGE IV
     Dosage: CUMULATIVE DOSE DURING TREATMENT: 963 MG/BODY
     Route: 065
  3. CARBOPLATIN. [Suspect]
     Active Substance: CARBOPLATIN
     Indication: CERVIX CARCINOMA STAGE IV
     Dosage: CUMULATIVE DOSE DURING TREATMENT: 5900 MG/BODY
     Route: 065
  4. CAMPTOTHECIN [Suspect]
     Active Substance: CAMPTOTHECIN
     Indication: CERVIX CARCINOMA STAGE IV
     Route: 065

REACTIONS (1)
  - Acute myeloid leukaemia [Fatal]
